FAERS Safety Report 8007239-7 (Version None)
Quarter: 2011Q4

REPORT INFORMATION
  Report Type: 
  Country: None (occurrence: None)
  Receive Date: 20111222
  Receipt Date: 20111222
  Transmission Date: 20120403
  Serious: Yes (Life-Threatening, Hospitalization)
  Sender: FDA-Public Use
  Company Number: None

PATIENT
  Age: 73 Year
  Sex: Male
  Weight: 138.7 kg

DRUGS (4)
  1. SIMVASTATIN [Suspect]
     Indication: DIABETES MELLITUS
     Dosage: 80 MG HS PO
     Route: 048
     Dates: start: 20020701, end: 20111201
  2. SIMVASTATIN [Suspect]
     Indication: HYPERLIPIDAEMIA
     Dosage: 80 MG HS PO
     Route: 048
     Dates: start: 20020701, end: 20111201
  3. SIMVASTATIN [Suspect]
     Indication: HYPERLIPIDAEMIA
     Dosage: 80 MG HS PO
     Route: 048
     Dates: start: 20020701, end: 20111201
  4. SIMVASTATIN [Suspect]
     Indication: DIABETES MELLITUS
     Dosage: 80 MG HS PO
     Route: 048
     Dates: start: 20020701, end: 20111201

REACTIONS (1)
  - RHABDOMYOLYSIS [None]
